FAERS Safety Report 8599307-6 (Version None)
Quarter: 2012Q3

REPORT INFORMATION
  Report Type: 
  Country: None (occurrence: None)
  Receive Date: 20120816
  Receipt Date: 20120629
  Transmission Date: 20120928
  Serious: No
  Sender: FDA-Public Use
  Company Number: US-AMGEN-USASP2012029812

PATIENT
  Age: 72 Year
  Sex: Female
  Weight: 76.19 kg

DRUGS (6)
  1. NEULASTA [Suspect]
     Indication: CHEMOTHERAPY
     Dosage: UNK
     Dates: start: 20120411
  2. TAXOTERE [Concomitant]
     Dosage: 135 MG, Q3WK
     Route: 042
  3. CYTOXAN [Concomitant]
     Dosage: 1080 MG, Q3WK
     Route: 042
  4. ALOXI [Concomitant]
     Route: 042
  5. DECADRON                           /00016002/ [Concomitant]
     Route: 042
  6. NEUPOGEN [Suspect]
     Indication: CHEMOTHERAPY
     Dosage: 480 MUG, UNK
     Route: 058
     Dates: start: 20120501, end: 20120508

REACTIONS (4)
  - PRURITUS [None]
  - FEELING ABNORMAL [None]
  - URTICARIA [None]
  - RASH [None]
